FAERS Safety Report 17443419 (Version 1)
Quarter: 2020Q1

REPORT INFORMATION
  Report Type: Spontaneous
  Country: RO (occurrence: RO)
  Receive Date: 20200221
  Receipt Date: 20200221
  Transmission Date: 20200409
  Serious: Yes (Other)
  Sender: FDA-Public Use
  Company Number: RO-SA-2020SA019591

PATIENT
  Age: 56 Year
  Sex: Male

DRUGS (3)
  1. XATRAL - SLOW RELEASE [Suspect]
     Active Substance: ALFUZOSIN
     Indication: PROSTATITIS
     Dosage: 10 MG, QD
     Route: 048
     Dates: start: 202001, end: 2020
  2. TAMSULOSIN HYDROCHLORIDE. [Suspect]
     Active Substance: TAMSULOSIN HYDROCHLORIDE
     Indication: PRODUCT USED FOR UNKNOWN INDICATION
     Dosage: UNK
     Dates: start: 2019, end: 201912
  3. MARATHON [OLANZAPINE] [Concomitant]
     Dosage: UNK
     Dates: start: 202002

REACTIONS (2)
  - Neck pain [Recovered/Resolved]
  - Erectile dysfunction [Not Recovered/Not Resolved]
